FAERS Safety Report 6565409-9 (Version None)
Quarter: 2010Q1

REPORT INFORMATION
  Report Type: 
  Country: None (occurrence: None)
  Receive Date: 20100201
  Receipt Date: 20100118
  Transmission Date: 20100710
  Serious: Yes (Other)
  Sender: FDA-Public Use
  Company Number: PHHY2010FR02890

PATIENT

DRUGS (1)
  1. AFINITOR [Suspect]
     Dosage: 10 MG, UNK
     Route: 048

REACTIONS (1)
  - LUNG DISORDER [None]
